FAERS Safety Report 7099293-4 (Version None)
Quarter: 2010Q4

REPORT INFORMATION
  Report Type: 
  Country: None (occurrence: None)
  Receive Date: 20101112
  Receipt Date: 20101108
  Transmission Date: 20110411
  Serious: Yes (Death)
  Sender: FDA-Public Use
  Company Number: PHEH2010US03819

PATIENT
  Sex: Male

DRUGS (2)
  1. EXJADE [Suspect]
     Indication: MYELODYSPLASTIC SYNDROME
     Dosage: 1500 MG, UNK
     Route: 065
     Dates: start: 20100601
  2. EXJADE [Suspect]
     Dosage: 1000 MG, UNK

REACTIONS (2)
  - RASH [None]
  - RESPIRATORY DISTRESS [None]
